FAERS Safety Report 14181874 (Version 1)
Quarter: 2017Q4

REPORT INFORMATION
  Report Type: Spontaneous
  Country: US (occurrence: None)
  Receive Date: 20171109
  Receipt Date: 20171109
  Transmission Date: 20180321
  Serious: Yes (Other)
  Sender: FDA-Public Use
  Company Number: None

PATIENT
  Sex: Male
  Weight: 22.68 kg

DRUGS (5)
  1. STRATTERA [Concomitant]
     Active Substance: ATOMOXETINE HYDROCHLORIDE
  2. GUANFACINE ER [Suspect]
     Active Substance: GUANFACINE
     Indication: ATTENTION DEFICIT/HYPERACTIVITY DISORDER
     Dosage: 1 TABLET QAM ORAL
     Route: 048
     Dates: start: 20170808, end: 20171023
  3. ZOLOFT [Concomitant]
     Active Substance: SERTRALINE HYDROCHLORIDE
  4. GUANFACINE ER [Suspect]
     Active Substance: GUANFACINE
     Indication: ATTENTION DEFICIT/HYPERACTIVITY DISORDER
     Dosage: 1 TABLET QAM ORAL
     Route: 048
     Dates: start: 20170512, end: 20170802
  5. L-METHYLFOLATE [Concomitant]
     Active Substance: LEVOMEFOLIC ACID

REACTIONS (6)
  - Anger [None]
  - Abnormal behaviour [None]
  - Aggression [None]
  - Product substitution issue [None]
  - Homicidal ideation [None]
  - Therapeutic response decreased [None]
